FAERS Safety Report 15761624 (Version 3)
Quarter: 2019Q1

REPORT INFORMATION
  Report Type: Spontaneous
  Country: JP (occurrence: JP)
  Receive Date: 20181226
  Receipt Date: 20190115
  Transmission Date: 20190417
  Serious: Yes (Hospitalization, Other)
  Sender: FDA-Public Use
  Company Number: JP-GLAXOSMITHKLINE-JP2018JPN223977

PATIENT
  Age: 85 Year
  Sex: Female
  Weight: 51 kg

DRUGS (2)
  1. REQUIP [Suspect]
     Active Substance: ROPINIROLE HYDROCHLORIDE
     Dosage: UNK
     Route: 048
     Dates: start: 20181214
  2. REQUIP [Suspect]
     Active Substance: ROPINIROLE HYDROCHLORIDE
     Indication: PARKINSON^S DISEASE
     Dosage: 10 MG, 1D
     Route: 048

REACTIONS (4)
  - Cholecystitis [Recovering/Resolving]
  - Cholecystitis acute [Recovered/Resolved]
  - Jaundice cholestatic [Recovering/Resolving]
  - Gallbladder rupture [Recovered/Resolved]

NARRATIVE: CASE EVENT DATE: 20181210
